FAERS Safety Report 4463432-1 (Version None)
Quarter: 2004Q3

REPORT INFORMATION
  Report Type: 
  Country: None (occurrence: None)
  Receive Date: 20040928
  Receipt Date: 20040910
  Transmission Date: 20050211
  Serious: Yes (Hospitalization)
  Sender: FDA-Public Use
  Company Number: DSA_60445_2004

PATIENT
  Age: 80 Year
  Sex: Male
  Weight: 86.1834 kg

DRUGS (5)
  1. MYSOLINE [Suspect]
     Indication: TREMOR
     Dosage: 250 MG TID PO
     Route: 048
     Dates: start: 20040801, end: 20040908
  2. MYSOLINE [Suspect]
     Indication: TREMOR
     Dosage: 50 MG TID PO
     Route: 048
     Dates: end: 20040801
  3. MYSOLINE [Suspect]
     Indication: TREMOR
     Dosage: 150 MG TID PO
     Route: 048
     Dates: start: 20040908
  4. PROSCARD [Concomitant]
  5. DITROPAN [Concomitant]

REACTIONS (9)
  - BLISTER [None]
  - CHOKING [None]
  - CONDITION AGGRAVATED [None]
  - EXPRESSIVE LANGUAGE DISORDER [None]
  - HALLUCINATION [None]
  - ISCHAEMIC STROKE [None]
  - MEDICATION ERROR [None]
  - SOCIAL AVOIDANT BEHAVIOUR [None]
  - VISION BLURRED [None]
